FAERS Safety Report 7504016-8 (Version None)
Quarter: 2011Q2

REPORT INFORMATION
  Report Type: 
  Country: None (occurrence: None)
  Receive Date: 20110525
  Receipt Date: 20110523
  Transmission Date: 20111010
  Serious: No
  Sender: FDA-Public Use
  Company Number: US-TEVA-283028USA

PATIENT
  Sex: Female

DRUGS (2)
  1. NYQUIL [Suspect]
     Route: 048
     Dates: start: 20110520, end: 20110520
  2. COPAXONE [Suspect]
     Indication: MULTIPLE SCLEROSIS
     Dosage: 20 MILLIGRAM;
     Route: 058
     Dates: start: 20110429, end: 20110520

REACTIONS (1)
  - HYPERSENSITIVITY [None]
